FAERS Safety Report 19866147 (Version 1)
Quarter: 2021Q3

REPORT INFORMATION
  Report Type: Spontaneous
  Country: IN (occurrence: IN)
  Receive Date: 20210921
  Receipt Date: 20210921
  Transmission Date: 20211014
  Serious: No
  Sender: FDA-Public Use
  Company Number: IN-LUPIN PHARMACEUTICALS INC.-2021-17722

PATIENT
  Age: 10 Year
  Sex: Male

DRUGS (5)
  1. RITUXIMAB. [Concomitant]
     Active Substance: RITUXIMAB
     Indication: ATYPICAL HAEMOLYTIC URAEMIC SYNDROME
     Dosage: UNK 2 DOSES
     Route: 065
     Dates: start: 202003
  2. AZITHROMYCIN ANHYDROUS. [Suspect]
     Active Substance: AZITHROMYCIN ANHYDROUS
     Indication: COVID-19
     Dosage: UNK
     Route: 048
     Dates: start: 202004
  3. MYCOPHENOLATE MOFETIL. [Concomitant]
     Active Substance: MYCOPHENOLATE MOFETIL
     Indication: ATYPICAL HAEMOLYTIC URAEMIC SYNDROME
     Dosage: 800 MILLIGRAM/SQ. METER, QD
     Route: 048
     Dates: start: 202003
  4. IMMUNOGLOBULIN [Concomitant]
     Indication: ATYPICAL HAEMOLYTIC URAEMIC SYNDROME
     Dosage: UNK (2 G/KG DOSE IN DIVIDED DOSES OVER TWO DAYS)
     Route: 065
     Dates: start: 2020
  5. PREDNISOLONE. [Concomitant]
     Active Substance: PREDNISOLONE
     Indication: ATYPICAL HAEMOLYTIC URAEMIC SYNDROME
     Dosage: 1 MILLIGRAM/KILOGRAM, QD
     Route: 048
     Dates: start: 202003

REACTIONS (1)
  - Off label use [Unknown]

NARRATIVE: CASE EVENT DATE: 202004
